FAERS Safety Report 9728037 (Version 2)
Quarter: 2013Q4

REPORT INFORMATION
  Report Type: Spontaneous
  Country: NL (occurrence: None)
  Receive Date: 20131127
  Receipt Date: 20131205
  Transmission Date: 20140711
  Serious: Yes (Hospitalization)
  Sender: FDA-Public Use
  Company Number: 2026930

PATIENT
  Age: 48 Year
  Sex: Female
  Weight: 70 kg

DRUGS (6)
  1. DOCETAXEL [Suspect]
     Indication: BREAST CANCER
     Dosage: EXTRA INFORMATION TAC TREATMENT, EXACT POSOLOGY UNKNOWN INTRAVENOUS (NOT OTHERWISE SPECIFIED)?
     Route: 042
     Dates: start: 20131028
  2. DOXORUBICIN HYDROCHLORIDE [Suspect]
     Indication: BREAST CANCER
     Dosage: EXTRA INFORMATION TAC TREATMENT, EXACT POSOLOGY UNKNOWN INTRAVENOUS (NOT OTHERWISE SPECIFIED)?
     Route: 042
     Dates: start: 20131028
  3. CYCLOPHOSPHAMIDE [Suspect]
     Indication: BREAST CANCER
     Dosage: EXTRA INFORMATION TAC TREATMENT, EXACT POSOLOGY UNKNOWN INTRAVENOUS (NOT OTHERWISE SPECIFIED)?
     Route: 042
     Dates: start: 20131028
  4. DEXAMETHASON [Concomitant]
  5. APREPITANT [Suspect]
  6. PEGFILGRASTIM [Concomitant]

REACTIONS (4)
  - Laryngeal oedema [None]
  - Dyspnoea [None]
  - Larynx irritation [None]
  - Throat tightness [None]
